FAERS Safety Report 13329914 (Version 1)
Quarter: 2017Q1

REPORT INFORMATION
  Report Type: Spontaneous
  Country: US (occurrence: US)
  Receive Date: 20170313
  Receipt Date: 20170313
  Transmission Date: 20170428
  Serious: Yes (Other)
  Sender: FDA-Public Use
  Company Number: US-JNJFOC-20170309299

PATIENT
  Age: 52 Year
  Sex: Male
  Weight: 113.4 kg

DRUGS (1)
  1. STELARA [Suspect]
     Active Substance: USTEKINUMAB
     Indication: PSORIASIS
     Route: 058
     Dates: start: 20150506, end: 20161005

REACTIONS (1)
  - B-cell small lymphocytic lymphoma [Unknown]

NARRATIVE: CASE EVENT DATE: 20170113
